FAERS Safety Report 7446148-9 (Version None)
Quarter: 2011Q2

REPORT INFORMATION
  Report Type: 
  Country: None (occurrence: None)
  Receive Date: 20110429
  Receipt Date: 20110412
  Transmission Date: 20111010
  Serious: Yes (Hospitalization, Other)
  Sender: FDA-Public Use
  Company Number: B0713280A

PATIENT
  Age: 31 Year
  Sex: Female

DRUGS (7)
  1. PAXIL [Suspect]
     Indication: PANIC DISORDER
     Dosage: 120MG PER DAY
     Route: 048
     Dates: start: 20110411, end: 20110411
  2. MEILAX [Suspect]
     Route: 048
     Dates: start: 20110411, end: 20110411
  3. SEROQUEL [Suspect]
     Route: 048
     Dates: start: 20110411, end: 20110411
  4. SOLANAX [Suspect]
     Route: 048
     Dates: start: 20110411, end: 20110411
  5. DEPAKENE [Suspect]
     Route: 048
     Dates: start: 20110411, end: 20110411
  6. TRYPTANOL [Suspect]
     Route: 048
     Dates: start: 20110411, end: 20110411
  7. HALCION [Suspect]
     Route: 048
     Dates: start: 20110411, end: 20110411

REACTIONS (2)
  - OVERDOSE [None]
  - NO ADVERSE EVENT [None]
